FAERS Safety Report 7883162-3 (Version None)
Quarter: 2011Q4

REPORT INFORMATION
  Report Type: 
  Country: None (occurrence: None)
  Receive Date: 20111101
  Receipt Date: 20111101
  Transmission Date: 20120403
  Serious: Yes (Hospitalization)
  Sender: FDA-Public Use
  Company Number: None

PATIENT
  Sex: Female
  Weight: 47.9 kg

DRUGS (1)
  1. ERBITUX [Suspect]
     Dosage: 395 MG

REACTIONS (3)
  - FATIGUE [None]
  - RENAL FAILURE [None]
  - HYPERGLYCAEMIA [None]
